FAERS Safety Report 11970950 (Version 1)
Quarter: 2016Q1

REPORT INFORMATION
  Report Type: Spontaneous
  Country: US (occurrence: None)
  Receive Date: 20160126
  Receipt Date: 20160126
  Transmission Date: 20160526
  Serious: Yes (Other)
  Sender: FDA-Public Use
  Company Number: None

PATIENT
  Age: 57 Year
  Sex: Male
  Weight: 77.11 kg

DRUGS (1)
  1. MORPHINE SULFATE ER CAPSULES 50 MG PAR PHARMACEUTICAL [Suspect]
     Active Substance: MORPHINE SULFATE
     Indication: PAIN
     Route: 048
     Dates: start: 20151111, end: 20151211

REACTIONS (1)
  - Product measured potency issue [None]

NARRATIVE: CASE EVENT DATE: 20151111
